FAERS Safety Report 5750739-0 (Version None)
Quarter: 2008Q2

REPORT INFORMATION
  Report Type: 
  Country: None (occurrence: None)
  Receive Date: 20080523
  Receipt Date: 20080523
  Transmission Date: 20081010
  Serious: Yes (Hospitalization)
  Sender: FDA-Public Use
  Company Number: None

PATIENT
  Age: 84 Year
  Sex: Female
  Weight: 45 kg

DRUGS (8)
  1. LORAZEPAM [Suspect]
     Indication: NECK PAIN
     Dosage: 1MG TID PO  RECENT
     Route: 048
  2. HYDROCODONE/APAP [Suspect]
     Indication: NECK PAIN
     Dosage: 1-2 PRN PO  RECENT
     Route: 048
  3. DEMADEX [Concomitant]
  4. LIPITOR [Concomitant]
  5. COZAAR [Concomitant]
  6. COREG [Concomitant]
  7. PLAVIX [Concomitant]
  8. NITRO-DUR [Concomitant]

REACTIONS (4)
  - FALL [None]
  - LETHARGY [None]
  - MENTAL STATUS CHANGES [None]
  - TRAUMATIC BRAIN INJURY [None]
